FAERS Safety Report 9365809 (Version 1)
Quarter: 2013Q2

REPORT INFORMATION
  Report Type: Spontaneous
  Country: US (occurrence: US)
  Receive Date: 20130625
  Receipt Date: 20130625
  Transmission Date: 20140414
  Serious: Yes (Other)
  Sender: FDA-Public Use
  Company Number: PHEH2013US013329

PATIENT
  Sex: Female

DRUGS (4)
  1. RECLAST [Suspect]
     Indication: OSTEOPOROSIS
     Route: 042
  2. FOSAMAX [Suspect]
     Indication: OSTEOPOROSIS
  3. ACTONEL [Suspect]
     Indication: OSTEOPOROSIS
  4. ALENDRONATE SODIUM [Suspect]
     Indication: OSTEOPOROSIS

REACTIONS (8)
  - Femur fracture [Unknown]
  - Stress fracture [Unknown]
  - Low turnover osteopathy [Unknown]
  - Injury [Unknown]
  - Emotional distress [Unknown]
  - Anhedonia [Unknown]
  - Anxiety [Unknown]
  - Pain [Unknown]
